FAERS Safety Report 10611141 (Version 2)
Quarter: 2014Q4

REPORT INFORMATION
  Report Type: Spontaneous
  Country: US (occurrence: US)
  Receive Date: 20141126
  Receipt Date: 20141126
  Transmission Date: 20150529
  Serious: Yes (Death)
  Sender: FDA-Public Use
  Company Number: US-MALLINCKRODT-T201304558

PATIENT
  Age: 55 Year
  Sex: Male

DRUGS (1)
  1. GABLOFEN [Suspect]
     Active Substance: BACLOFEN
     Indication: MUSCLE SPASTICITY
     Dosage: 271 MCG/DAY
     Route: 037

REACTIONS (2)
  - Death [Fatal]
  - Drug effect decreased [Unknown]

NARRATIVE: CASE EVENT DATE: 20140120
